FAERS Safety Report 4622032-0 (Version None)
Quarter: 2005Q1

REPORT INFORMATION
  Report Type: 
  Country: None (occurrence: None)
  Receive Date: 20050328
  Receipt Date: 20050311
  Transmission Date: 20050727
  Serious: Yes (Hospitalization)
  Sender: FDA-Public Use
  Company Number: ATO-05-0081

PATIENT
  Age: 90 Year
  Sex: Male
  Weight: 60.782 kg

DRUGS (10)
  1. TRISENOX [Suspect]
     Indication: MULTIPLE MYELOMA
     Dosage: (0.25 MG/KG, DAILY), IVI
     Route: 042
     Dates: start: 20041026, end: 20041227
  2. ALOXI [Concomitant]
  3. ASCORBIC ACID [Concomitant]
  4. KYTRIL [Concomitant]
  5. ARANESP [Concomitant]
  6. NEUPOGEN [Concomitant]
  7. AREDIA [Concomitant]
  8. MELPHALAN [Concomitant]
  9. DECADRON [Concomitant]
  10. PREDNISONE [Concomitant]

REACTIONS (5)
  - DEHYDRATION [None]
  - NAUSEA [None]
  - PAIN [None]
  - POST HERPETIC NEURALGIA [None]
  - VOMITING [None]
